FAERS Safety Report 6816736-9 (Version None)
Quarter: 2010Q3

REPORT INFORMATION
  Report Type: 
  Country: None (occurrence: None)
  Receive Date: 20100706
  Receipt Date: 20100623
  Transmission Date: 20110219
  Serious: Yes (Hospitalization)
  Sender: FDA-Public Use
  Company Number: PHHY2010GB27334

PATIENT
  Sex: Male

DRUGS (2)
  1. CLOZARIL [Suspect]
     Indication: SCHIZOPHRENIA
     Dosage: UNK
     Dates: start: 20091020, end: 20100301
  2. CLOZARIL [Suspect]
     Dosage: UNK
     Dates: start: 20100420

REACTIONS (2)
  - GENERAL PHYSICAL HEALTH DETERIORATION [None]
  - TREATMENT NONCOMPLIANCE [None]
